FAERS Safety Report 10183813 (Version 1)
Quarter: 2014Q2

REPORT INFORMATION
  Report Type: Spontaneous
  Country: ES (occurrence: ES)
  Receive Date: 20140520
  Receipt Date: 20140520
  Transmission Date: 20141212
  Serious: Yes (Other)
  Sender: FDA-Public Use
  Company Number: ES-DSJP-DSE-2014-108094

PATIENT
  Sex: 0

DRUGS (1)
  1. IXIA [Suspect]
     Indication: HYPERTENSION
     Dosage: UNK
     Route: 048
     Dates: start: 20140327, end: 20140408

REACTIONS (1)
  - Rectal haemorrhage [Recovered/Resolved]
